FAERS Safety Report 5280126-3 (Version None)
Quarter: 2007Q1

REPORT INFORMATION
  Report Type: 
  Country: None (occurrence: None)
  Receive Date: 20061229
  Receipt Date: 20060929
  Transmission Date: 20070707
  Serious: Yes (Other)
  Sender: FDA-Public Use
  Company Number: 2006UW15307

PATIENT
  Age: 73 Year
  Sex: Female
  Weight: 64.8644 kg

DRUGS (5)
  1. CRESTOR [Suspect]
     Indication: HYPERCHOLESTEROLAEMIA
     Dosage: 5 MG DAILY PO
     Route: 048
     Dates: start: 20060213
  2. CARDIZEM [Concomitant]
  3. PREMARIN [Concomitant]
  4. XANAX [Concomitant]
  5. ACTONEL [Concomitant]

REACTIONS (7)
  - ABDOMINAL DISCOMFORT [None]
  - ANXIETY [None]
  - BLOOD PRESSURE IMMEASURABLE [None]
  - FATIGUE [None]
  - GASTROINTESTINAL DISORDER [None]
  - LIMB DISCOMFORT [None]
  - STOMACH DISCOMFORT [None]
